FAERS Safety Report 5748943-0 (Version None)
Quarter: 2008Q2

REPORT INFORMATION
  Report Type: 
  Country: None (occurrence: None)
  Receive Date: 20080526
  Receipt Date: 20080521
  Transmission Date: 20081010
  Serious: Yes (Hospitalization, Other)
  Sender: FDA-Public Use
  Company Number: GB-RANBAXY-2008RR-15352

PATIENT

DRUGS (4)
  1. SIMVASTATIN [Suspect]
     Indication: HYPERCHOLESTEROLAEMIA
     Dosage: 40 MG, QD
     Route: 048
     Dates: start: 20080314
  2. ASPIRIN [Concomitant]
     Indication: CARDIOVASCULAR EVENT PROPHYLAXIS
     Dosage: 300 MG, QD
     Route: 065
     Dates: start: 20070709
  3. BISOPROLOL FUMARATE [Concomitant]
     Indication: HYPERTENSION
     Dosage: 7.5 MG, QD
     Route: 065
     Dates: start: 20070523
  4. RAMIPRIL [Concomitant]
     Indication: HYPERTENSION
     Dosage: 10 MG, QD
     Route: 065
     Dates: start: 20070410

REACTIONS (1)
  - AORTIC ANEURYSM [None]
